FAERS Safety Report 6815093-1 (Version None)
Quarter: 2010Q3

REPORT INFORMATION
  Report Type: 
  Country: None (occurrence: None)
  Receive Date: 20100702
  Receipt Date: 20100624
  Transmission Date: 20110219
  Serious: Yes (Death)
  Sender: FDA-Public Use
  Company Number: PT-WATSON-2010-08635

PATIENT
  Age: 57 Year
  Sex: Female

DRUGS (4)
  1. DIAZEPAM [Suspect]
     Indication: DEPRESSION
     Dosage: UNK
  2. TIANEPTINE [Suspect]
     Indication: DEPRESSION
     Dosage: UNK
  3. ESTAZOLAM [Suspect]
     Indication: DEPRESSION
     Dosage: UNK
  4. TRASTUZUMAB [Suspect]
     Indication: BREAST CANCER
     Dosage: UNK

REACTIONS (2)
  - ARRHYTHMIA [None]
  - CARDIAC DEATH [None]
